FAERS Safety Report 8386914-9 (Version None)
Quarter: 2012Q2

REPORT INFORMATION
  Report Type: 
  Country: None (occurrence: None)
  Receive Date: 20120525
  Receipt Date: 20120514
  Transmission Date: 20120825
  Serious: Yes (Life-Threatening)
  Sender: FDA-Public Use
  Company Number: US-JNJFOC-20120513585

PATIENT
  Sex: Male
  Weight: 86.18 kg

DRUGS (3)
  1. REMICADE [Suspect]
     Indication: PSORIASIS
     Route: 042
     Dates: start: 20120201
  2. VITAMIN D AND ANALOGUES [Concomitant]
     Route: 061
  3. CORTICOSTEROIDS, NOS [Concomitant]

REACTIONS (1)
  - MALIGNANT MELANOMA [None]
